FAERS Safety Report 5662841-2 (Version None)
Quarter: 2008Q1

REPORT INFORMATION
  Report Type: 
  Country: None (occurrence: None)
  Receive Date: 20080313
  Receipt Date: 20080228
  Transmission Date: 20080703
  Serious: Yes (Hospitalization, Other)
  Sender: FDA-Public Use
  Company Number: GB-AVENTIS-200810840GDDC

PATIENT
  Age: 61 Year
  Sex: Female

DRUGS (7)
  1. GLIBENCLAMIDE [Suspect]
     Dosage: DOSE: UNK
  2. METFORMIN [Suspect]
     Indication: DIABETES MELLITUS
     Dosage: DOSE: UNK
  3. LEVOTHYROXINE SODIUM [Suspect]
     Dosage: DOSE: UNK
  4. CAPTOPRIL [Suspect]
     Dosage: DOSE: UNK
  5. DICLOFENAC SODIUM [Suspect]
     Indication: ARTHRALGIA
     Dosage: DOSE: UNK
  6. NAPROXEN [Suspect]
     Indication: ARTHRALGIA
     Dosage: DOSE: UNK
  7. ROFECOXIB [Suspect]
     Indication: ARTHRALGIA
     Dosage: DOSE: UNK

REACTIONS (4)
  - HAEMODIALYSIS [None]
  - LACTIC ACIDOSIS [None]
  - METABOLIC ACIDOSIS [None]
  - RENAL FAILURE ACUTE [None]
